FAERS Safety Report 16936985 (Version 1)
Quarter: 2019Q4

REPORT INFORMATION
  Report Type: Spontaneous
  Country: US (occurrence: US)
  Receive Date: 20191018
  Receipt Date: 20191018
  Transmission Date: 20200122
  Serious: Yes (Life-Threatening, Hospitalization, Other)
  Sender: FDA-Public Use
  Company Number: US-AMGEN-USASP2019172101

PATIENT
  Sex: Female

DRUGS (2)
  1. SOLIRIS [Suspect]
     Active Substance: ECULIZUMAB
     Indication: PAROXYSMAL NOCTURNAL HAEMOGLOBINURIA
     Dosage: 300 MILLIGRAM
     Route: 065
  2. PROCRIT [Suspect]
     Active Substance: ERYTHROPOIETIN
     Indication: PRODUCT USED FOR UNKNOWN INDICATION
     Dosage: UNK
     Route: 065

REACTIONS (8)
  - Myelodysplastic syndrome [Unknown]
  - Renal impairment [Unknown]
  - Muscular weakness [Unknown]
  - Bone pain [Unknown]
  - Ascites [Unknown]
  - Gastrointestinal necrosis [Unknown]
  - Intestinal obstruction [Unknown]
  - Gait inability [Unknown]

NARRATIVE: CASE EVENT DATE: 2019
